FAERS Safety Report 7998710-2 (Version None)
Quarter: 2011Q4

REPORT INFORMATION
  Report Type: 
  Country: None (occurrence: None)
  Receive Date: 20111221
  Receipt Date: 20111215
  Transmission Date: 20120403
  Serious: Yes (Other)
  Sender: FDA-Public Use
  Company Number: US-PFIZER INC-2011304286

PATIENT
  Sex: Male
  Weight: 64.853 kg

DRUGS (1)
  1. VIAGRA [Suspect]
     Indication: ERECTILE DYSFUNCTION
     Dosage: 100 MG, AS NEEDED
     Route: 048
     Dates: start: 20111201

REACTIONS (5)
  - PENIS DISORDER [None]
  - FLUSHING [None]
  - PENILE PAIN [None]
  - PENILE HAEMORRHAGE [None]
  - ABDOMINAL DISCOMFORT [None]
